FAERS Safety Report 13771153 (Version 5)
Quarter: 2019Q1

REPORT INFORMATION
  Report Type: Report from Study
  Country: DE (occurrence: DE)
  Receive Date: 20170720
  Receipt Date: 20190325
  Transmission Date: 20190417
  Serious: Yes (Hospitalization)
  Sender: FDA-Public Use
  Company Number: DE-ROCHE-1933512

PATIENT
  Age: 69 Year
  Sex: Male
  Weight: 104 kg

DRUGS (3)
  1. VISMODEGIB. [Suspect]
     Active Substance: VISMODEGIB
     Route: 048
     Dates: start: 20151105, end: 20161020
  2. VISMODEGIB. [Suspect]
     Active Substance: VISMODEGIB
     Indication: BASAL CELL CARCINOMA
     Dosage: TREATMENT RE-INTRODUCED ON 05/NOV/2016
     Route: 048
     Dates: start: 20151021, end: 20151027
  3. VISMODEGIB. [Suspect]
     Active Substance: VISMODEGIB
     Dosage: INTERRUPTED ON THE SAME DAY DUE TO EVENT: PULMONARY EMBOLISM.
     Route: 048
     Dates: start: 20151028, end: 20161012

REACTIONS (5)
  - Pulmonary embolism [Recovered/Resolved]
  - Alopecia [Recovered/Resolved]
  - Muscle spasms [Recovered/Resolved]
  - Fatigue [Recovered/Resolved]
  - Ageusia [Recovered/Resolved]

NARRATIVE: CASE EVENT DATE: 20151028
